FAERS Safety Report 6998877-9 (Version None)
Quarter: 2010Q3

REPORT INFORMATION
  Report Type: 
  Country: None (occurrence: None)
  Receive Date: 20100920
  Receipt Date: 20100209
  Transmission Date: 20110219
  Serious: No
  Sender: FDA-Public Use
  Company Number: US-ASTRAZENECA-2010SE05802

PATIENT
  Age: 34 Year
  Sex: Female
  Weight: 81.6 kg

DRUGS (3)
  1. SEROQUEL [Suspect]
     Indication: BIPOLAR DISORDER
     Route: 048
     Dates: start: 20090201
  2. ATIVAN [Concomitant]
  3. WELLBUTRIN [Concomitant]

REACTIONS (2)
  - POLLAKIURIA [None]
  - WEIGHT INCREASED [None]
